FAERS Safety Report 20492016 (Version 1)
Quarter: 2022Q1

REPORT INFORMATION
  Report Type: Report from Study
  Country: ES (occurrence: ES)
  Receive Date: 20220218
  Receipt Date: 20220218
  Transmission Date: 20220424
  Serious: Yes (Hospitalization)
  Sender: FDA-Public Use
  Company Number: ES-ABBVIE-22P-144-4260395-00

PATIENT
  Age: 77 Year
  Sex: Male
  Weight: 89 kg

DRUGS (11)
  1. IBRUTINIB [Suspect]
     Active Substance: IBRUTINIB
     Indication: Mantle cell lymphoma
     Route: 048
     Dates: start: 20210817, end: 20220124
  2. IBRUTINIB [Suspect]
     Active Substance: IBRUTINIB
     Indication: Diffuse large B-cell lymphoma
  3. LONCASTUXIMAB TESIRINE/ADCT-402 [Concomitant]
     Indication: Diffuse large B-cell lymphoma
     Route: 042
     Dates: start: 20210817, end: 20220124
  4. LONCASTUXIMAB TESIRINE/ADCT-402 [Concomitant]
     Indication: Mantle cell lymphoma
  5. PANTOPRAZOLE SODIUM [Concomitant]
     Active Substance: PANTOPRAZOLE SODIUM
     Indication: Product used for unknown indication
  6. FENTANYL [Concomitant]
     Active Substance: FENTANYL
     Indication: Product used for unknown indication
  7. ROSUVASTATIN [Concomitant]
     Active Substance: ROSUVASTATIN
     Indication: Product used for unknown indication
  8. ASPIRIN [Concomitant]
     Active Substance: ASPIRIN
     Indication: Product used for unknown indication
  9. SULFAMETHOXAZOLE\TRIMETHOPRIM [Concomitant]
     Active Substance: SULFAMETHOXAZOLE\TRIMETHOPRIM
     Indication: Product used for unknown indication
  10. ALLOPURINOL [Concomitant]
     Active Substance: ALLOPURINOL
     Indication: Product used for unknown indication
  11. RANEXA [Concomitant]
     Active Substance: RANOLAZINE
     Indication: Product used for unknown indication

REACTIONS (3)
  - Pneumatosis intestinalis [Not Recovered/Not Resolved]
  - Cholecystitis acute [Recovered/Resolved]
  - Coronary artery disease [Not Recovered/Not Resolved]

NARRATIVE: CASE EVENT DATE: 20220124
